FAERS Safety Report 17206737 (Version 6)
Quarter: 2020Q3

REPORT INFORMATION
  Report Type: Report from Study
  Country: JP (occurrence: JP)
  Receive Date: 20191227
  Receipt Date: 20200807
  Transmission Date: 20201102
  Serious: Yes (Other)
  Sender: FDA-Public Use
  Company Number: JP-BRISTOL-MYERS SQUIBB COMPANY-BMS-2019-123696

PATIENT
  Age: 53 Year
  Sex: Female
  Weight: 57 kg

DRUGS (20)
  1. ABATACEPT [Suspect]
     Active Substance: ABATACEPT
     Dosage: 500 MILLIGRAM, ONE TIME DOSE
     Route: 041
     Dates: start: 20190805, end: 20190805
  2. ABATACEPT [Suspect]
     Active Substance: ABATACEPT
     Dosage: 500 MILLIGRAM, ONE TIME DOSE
     Route: 041
     Dates: start: 20191202, end: 20191202
  3. ABATACEPT [Suspect]
     Active Substance: ABATACEPT
     Dosage: 500 MILLIGRAM, ONE TIME DOSE
     Route: 041
     Dates: start: 20190426, end: 20190426
  4. ABATACEPT [Suspect]
     Active Substance: ABATACEPT
     Dosage: 500 MILLIGRAM, ONE TIME DOSE
     Route: 041
     Dates: start: 20200629, end: 20200629
  5. PROGRAF [Suspect]
     Active Substance: TACROLIMUS
     Indication: JUVENILE IDIOPATHIC ARTHRITIS
     Dosage: 1 MILLIGRAM, QD
     Route: 048
     Dates: start: 20140929
  6. PERSANTIN [Concomitant]
     Active Substance: DIPYRIDAMOLE
     Indication: DISEASE COMPLICATION
     Dosage: 50 MILLIGRAM, QD
     Route: 048
     Dates: start: 20170220
  7. BAYASPIRIN [Concomitant]
     Active Substance: ASPIRIN
     Indication: DISEASE COMPLICATION
     Dosage: 100 MILLIGRAM, QD
     Route: 048
     Dates: start: 20170220
  8. METHOTREXATE. [Suspect]
     Active Substance: METHOTREXATE
     Dosage: 4 MILLIGRAM, QWK
     Route: 048
     Dates: end: 20191118
  9. ABATACEPT [Suspect]
     Active Substance: ABATACEPT
     Dosage: 500 MILLIGRAM, ONE TIME DOSE
     Route: 041
     Dates: start: 20191021, end: 20191021
  10. ABATACEPT [Suspect]
     Active Substance: ABATACEPT
     Indication: JUVENILE IDIOPATHIC ARTHRITIS
     Dosage: 500 MILLIGRAM, ONE TIME DOSE
     Route: 041
     Dates: start: 20190225, end: 20190225
  11. ABATACEPT [Suspect]
     Active Substance: ABATACEPT
     Dosage: 500 MILLIGRAM, ONE TIME DOSE
     Route: 041
     Dates: start: 20190325, end: 20190325
  12. ABATACEPT [Suspect]
     Active Substance: ABATACEPT
     Dosage: 500 MILLIGRAM, ONE TIME DOSE
     Route: 041
     Dates: start: 20190527, end: 20190527
  13. ABATACEPT [Suspect]
     Active Substance: ABATACEPT
     Dosage: 500 MILLIGRAM, ONE TIME DOSE
     Route: 041
     Dates: start: 20200601, end: 20200601
  14. PREDNISOLONE. [Concomitant]
     Active Substance: PREDNISOLONE
     Indication: JUVENILE IDIOPATHIC ARTHRITIS
     Dosage: 2 MILLIGRAM, QD
     Route: 048
     Dates: start: 20150627
  15. ABATACEPT [Suspect]
     Active Substance: ABATACEPT
     Dosage: 500 MILLIGRAM, ONE TIME DOSE
     Route: 041
     Dates: start: 20190705, end: 20190705
  16. ABATACEPT [Suspect]
     Active Substance: ABATACEPT
     Dosage: 500 MILLIGRAM, ONE TIME DOSE
     Route: 041
     Dates: start: 20200221, end: 20200221
  17. METHOTREXATE. [Suspect]
     Active Substance: METHOTREXATE
     Indication: JUVENILE IDIOPATHIC ARTHRITIS
     Dosage: 6 MILLIGRAM, QWK
     Route: 048
  18. RIMATIL [Concomitant]
     Active Substance: BUCILLAMINE
     Indication: JUVENILE IDIOPATHIC ARTHRITIS
     Dosage: 100 MILLIGRAM, QD
     Route: 048
     Dates: start: 20130603
  19. ABATACEPT [Suspect]
     Active Substance: ABATACEPT
     Dosage: 500 MILLIGRAM, ONE TIME DOSE
     Route: 041
     Dates: start: 20190902, end: 20190902
  20. ABATACEPT [Suspect]
     Active Substance: ABATACEPT
     Dosage: 500 MILLIGRAM, ONE TIME DOSE
     Route: 041
     Dates: start: 20200117, end: 20200117

REACTIONS (4)
  - Asthma [Recovering/Resolving]
  - Otitis media acute [Recovering/Resolving]
  - Sudden hearing loss [Unknown]
  - Bronchitis [Recovering/Resolving]

NARRATIVE: CASE EVENT DATE: 201909
